FAERS Safety Report 19702907 (Version 2)
Quarter: 2021Q3

REPORT INFORMATION
  Report Type: Spontaneous
  Country: DE (occurrence: DE)
  Receive Date: 20210816
  Receipt Date: 20210828
  Transmission Date: 20211014
  Serious: Yes (Hospitalization, Other)
  Sender: FDA-Public Use
  Company Number: DE-ABBVIE-21K-062-4037258-00

PATIENT
  Age: 75 Year
  Sex: Male

DRUGS (6)
  1. COSENTYX [Suspect]
     Active Substance: SECUKINUMAB
     Indication: PSORIASIS
     Route: 058
     Dates: start: 20210722, end: 202108
  2. TAMSULOSIN [Concomitant]
     Active Substance: TAMSULOSIN
     Indication: PRODUCT USED FOR UNKNOWN INDICATION
  3. AMLODIPIN [Concomitant]
     Active Substance: AMLODIPINE BESYLATE
     Indication: PRODUCT USED FOR UNKNOWN INDICATION
  4. CANDESARTAN. [Concomitant]
     Active Substance: CANDESARTAN
     Indication: PRODUCT USED FOR UNKNOWN INDICATION
  5. PANTOPRAZOL [Concomitant]
     Active Substance: PANTOPRAZOLE SODIUM
     Indication: PRODUCT USED FOR UNKNOWN INDICATION
  6. SKYRIZI [Suspect]
     Active Substance: RISANKIZUMAB-RZAA
     Indication: PSORIASIS
     Dosage: WEEK 0, WEEK 4, WEEK 16
     Route: 058
     Dates: start: 20210611, end: 202107

REACTIONS (29)
  - Papule [Unknown]
  - Tobacco abuse [Unknown]
  - Nail dystrophy [Unknown]
  - White blood cell count increased [Unknown]
  - Blood glucose increased [Unknown]
  - Skin exfoliation [Unknown]
  - Gamma-glutamyltransferase increased [Unknown]
  - Peripheral swelling [Recovered/Resolved with Sequelae]
  - Renal failure [Unknown]
  - Erythema [Unknown]
  - Skin fissures [Unknown]
  - Blood creatinine increased [Unknown]
  - Glomerular filtration rate decreased [Unknown]
  - Eosinophil count increased [Unknown]
  - Blood sodium decreased [Unknown]
  - Rash maculo-papular [Unknown]
  - Hypertension [Unknown]
  - Hepatic steatosis [Unknown]
  - Rash [Recovered/Resolved with Sequelae]
  - Hypersensitivity [Recovered/Resolved]
  - Symmetrical drug-related intertriginous and flexural exanthema [Unknown]
  - Red blood cell count increased [Unknown]
  - Red cell distribution width increased [Unknown]
  - Benign prostatic hyperplasia [Unknown]
  - Renal cyst [Unknown]
  - Pruritus [Unknown]
  - Macule [Unknown]
  - Skin disorder [Unknown]
  - Mean cell haemoglobin increased [Unknown]

NARRATIVE: CASE EVENT DATE: 2021
